FAERS Safety Report 18042282 (Version 2)
Quarter: 2020Q3

REPORT INFORMATION
  Report Type: Spontaneous
  Country: ES (occurrence: ES)
  Receive Date: 20200720
  Receipt Date: 20200805
  Transmission Date: 20201103
  Serious: Yes (Death, Life-Threatening, Hospitalization, Other)
  Sender: FDA-Public Use
  Company Number: ES-AUROBINDO-AUR-APL-2020-036139

PATIENT
  Age: 41 Year
  Sex: Male

DRUGS (5)
  1. TRAMADOL+PARACETAMOL 37.5MG/325 MG FILM COATED TABLET [Interacting]
     Active Substance: ACETAMINOPHEN\TRAMADOL
     Indication: SPINAL OSTEOARTHRITIS
  2. VENLAFAXINE [Interacting]
     Active Substance: VENLAFAXINE HYDROCHLORIDE
     Indication: ADJUSTMENT DISORDER WITH DEPRESSED MOOD
     Dosage: 150 MILLIGRAM, ONCE A DAY,150 MILLIGRAM, 1/DAY
     Route: 065
  3. DICLOFENAC SODIUM. [Concomitant]
     Active Substance: DICLOFENAC SODIUM
     Indication: PRODUCT USED FOR UNKNOWN INDICATION
     Dosage: UNK
     Route: 065
  4. TRAMADOL+PARACETAMOL 37.5MG/325 MG FILM COATED TABLET [Suspect]
     Active Substance: ACETAMINOPHEN\TRAMADOL
     Indication: MUSCULOSKELETAL DISORDER
     Dosage: 12 DOSAGE FORM, ONCE A DAY,12 DOSAGE FORM, 1/DAY
     Route: 065
  5. DIAZEPAM. [Concomitant]
     Active Substance: DIAZEPAM
     Indication: PRODUCT USED FOR UNKNOWN INDICATION
     Dosage: 2 MILLIGRAM, ONCE A DAY,2 MILLIGRAM, 1/DAY
     Route: 065

REACTIONS (26)
  - Hypotension [Fatal]
  - Toxicity to various agents [Fatal]
  - Upper limb fracture [Fatal]
  - Cognitive disorder [Unknown]
  - Treatment noncompliance [Unknown]
  - Confusional state [Fatal]
  - Sensory disturbance [Unknown]
  - Pulmonary contusion [Fatal]
  - Bradycardia [Fatal]
  - Mydriasis [Unknown]
  - Forearm fracture [Fatal]
  - Dizziness [Fatal]
  - Postmortem blood drug level increased [Fatal]
  - Pulse absent [Fatal]
  - Mouth haemorrhage [Unknown]
  - Coma [Unknown]
  - Cardiac arrest [Fatal]
  - Fall [Fatal]
  - Ear haemorrhage [Fatal]
  - Serotonin syndrome [Fatal]
  - Drug interaction [Fatal]
  - Skull fractured base [Fatal]
  - Craniocerebral injury [Fatal]
  - Drug dependence [Unknown]
  - Accident at work [Fatal]
  - Intentional overdose [Unknown]
